FAERS Safety Report 11225832 (Version 1)
Quarter: 2015Q2

REPORT INFORMATION
  Report Type: Spontaneous
  Country: IT (occurrence: IT)
  Receive Date: 20150629
  Receipt Date: 20150629
  Transmission Date: 20150821
  Serious: Yes (Hospitalization)
  Sender: FDA-Public Use
  Company Number: IT-GLAXOSMITHKLINE-IT2015GSK091874

PATIENT
  Age: 51 Year
  Sex: Female

DRUGS (2)
  1. ZELITREX [Suspect]
     Active Substance: VALACYCLOVIR HYDROCHLORIDE
     Indication: HERPES ZOSTER
     Dosage: 1 UNK, SINGLE
     Route: 048
     Dates: start: 20150622, end: 20150622
  2. OKI [Suspect]
     Active Substance: KETOPROFEN LYSINE
     Indication: PAIN IN EXTREMITY
     Dosage: 1 UNK, SINGLE
     Route: 048
     Dates: start: 20150622, end: 20150622

REACTIONS (4)
  - Pruritus [Recovering/Resolving]
  - Pyrexia [Recovering/Resolving]
  - Swelling face [Recovering/Resolving]
  - Generalised erythema [Recovering/Resolving]

NARRATIVE: CASE EVENT DATE: 20150622
